FAERS Safety Report 6498003-9 (Version None)
Quarter: 2009Q4

REPORT INFORMATION
  Report Type: 
  Country: None (occurrence: None)
  Receive Date: 20091215
  Receipt Date: 20091203
  Transmission Date: 20100525
  Serious: Yes (Other)
  Sender: FDA-Public Use
  Company Number: PHHY2009DE54063

PATIENT
  Sex: Male

DRUGS (1)
  1. GLEEVEC [Suspect]
     Indication: LEUKAEMIA
     Dosage: 400 MG/DAY
     Route: 048
     Dates: start: 20090901

REACTIONS (3)
  - ARTHRALGIA [None]
  - DRY EYE [None]
  - SUICIDAL IDEATION [None]
